FAERS Safety Report 18642777 (Version 1)
Quarter: 2020Q4

REPORT INFORMATION
  Report Type: Spontaneous
  Country: AU (occurrence: AU)
  Receive Date: 20201221
  Receipt Date: 20201221
  Transmission Date: 20210114
  Serious: Yes (Other)
  Sender: FDA-Public Use
  Company Number: AU-BAXTER-2020BAX026157

PATIENT
  Age: 14 Year
  Sex: Male

DRUGS (3)
  1. HOLOXAN IFOSFAMIDE 2G POWDER FOR INJECTION VIAL (OF) [Suspect]
     Active Substance: IFOSFAMIDE
     Indication: PRODUCT USED FOR UNKNOWN INDICATION
     Route: 065
  2. PAZOPANIB [Suspect]
     Active Substance: PAZOPANIB
     Indication: SARCOMA METASTATIC
     Route: 065
  3. DOXIL [Suspect]
     Active Substance: DOXORUBICIN HYDROCHLORIDE
     Indication: PRODUCT USED FOR UNKNOWN INDICATION
     Route: 065

REACTIONS (9)
  - Oesophagitis ulcerative [Unknown]
  - Chronic kidney disease [Unknown]
  - Pulmonary embolism [Unknown]
  - Sarcoma metastatic [Unknown]
  - Hypertension [Unknown]
  - Malignant neoplasm progression [Unknown]
  - Metastases to pelvis [Unknown]
  - Vomiting [Unknown]
  - Granulocyte-colony stimulating factor level increased [Unknown]
